FAERS Safety Report 5812701-9 (Version None)
Quarter: 2008Q3

REPORT INFORMATION
  Report Type: 
  Country: None (occurrence: None)
  Receive Date: 20080711
  Receipt Date: 20080702
  Transmission Date: 20090109
  Serious: Yes (Death)
  Sender: FDA-Public Use
  Company Number: 2008AL007888

PATIENT
  Sex: Male

DRUGS (1)
  1. DIGOXIN [Suspect]
     Dates: end: 20070825

REACTIONS (4)
  - ANHEDONIA [None]
  - ANXIETY [None]
  - INJURY [None]
  - PAIN [None]
